FAERS Safety Report 15859163 (Version 1)
Quarter: 2019Q1

REPORT INFORMATION
  Report Type: Spontaneous
  Country: US (occurrence: US)
  Receive Date: 20190123
  Receipt Date: 20190123
  Transmission Date: 20190417
  Serious: Yes (Other)
  Sender: FDA-Public Use
  Company Number: None

PATIENT
  Age: 24 Year
  Weight: 81.6 kg

DRUGS (1)
  1. RITUXAN [Suspect]
     Active Substance: RITUXIMAB
     Indication: MULTIPLE SCLEROSIS
     Dosage: ?          OTHER FREQUENCY:EVERY 2 WEEKS;?
     Route: 041
     Dates: start: 20190109, end: 20190109

REACTIONS (5)
  - Diarrhoea [None]
  - Ear pruritus [None]
  - Skin disorder [None]
  - Throat irritation [None]
  - Abdominal pain [None]

NARRATIVE: CASE EVENT DATE: 20190109
